FAERS Safety Report 9862928 (Version 2)
Quarter: 2014Q1

REPORT INFORMATION
  Report Type: Spontaneous
  Country: US (occurrence: US)
  Receive Date: 20140203
  Receipt Date: 20140221
  Transmission Date: 20141002
  Serious: Yes (Death, Life-Threatening, Hospitalization, Other)
  Sender: FDA-Public Use
  Company Number: US-009507513-1401USA014680

PATIENT
  Sex: Male
  Weight: 83.9 kg

DRUGS (5)
  1. JANUVIA [Suspect]
     Indication: TYPE 2 DIABETES MELLITUS
     Dosage: 100 MG, QD
     Route: 048
     Dates: start: 20080606, end: 20081201
  2. JANUMET [Suspect]
     Indication: TYPE 2 DIABETES MELLITUS
     Dosage: 50 MG/1000 MG, QD
     Route: 048
     Dates: start: 20090518, end: 20100410
  3. METFORMIN [Concomitant]
     Indication: TYPE 2 DIABETES MELLITUS
  4. GLIPIZIDE [Concomitant]
     Indication: TYPE 2 DIABETES MELLITUS
  5. LANTUS [Concomitant]
     Indication: TYPE 2 DIABETES MELLITUS

REACTIONS (31)
  - Pancreatic carcinoma metastatic [Fatal]
  - Metastases to liver [Unknown]
  - Peritoneal mesothelioma malignant [Unknown]
  - Explorative laparotomy [Unknown]
  - Cholecystectomy [Unknown]
  - Cholecystitis chronic [Recovered/Resolved]
  - Coronary artery disease [Unknown]
  - Lymph node calcification [Unknown]
  - Granulomatous liver disease [Unknown]
  - Atelectasis [Unknown]
  - Renal cyst [Unknown]
  - Hepatic cyst [Unknown]
  - Adrenal adenoma [Unknown]
  - Spinal osteoarthritis [Unknown]
  - Thyroid disorder [Unknown]
  - Blood cholesterol increased [Unknown]
  - Prostatomegaly [Unknown]
  - Hypertension [Unknown]
  - Bundle branch block right [Unknown]
  - Sinus bradycardia [Unknown]
  - Abdominal distension [Recovered/Resolved]
  - Chest pain [Recovered/Resolved]
  - Dyspnoea [Recovered/Resolved]
  - Hydrocholecystis [Unknown]
  - Diverticulum intestinal [Unknown]
  - Lipoma [Unknown]
  - Constipation [Unknown]
  - Abdominal pain [Recovered/Resolved]
  - Nausea [Recovered/Resolved]
  - Vomiting [Recovered/Resolved]
  - Diarrhoea [Recovered/Resolved]
